FAERS Safety Report 5926638-8 (Version None)
Quarter: 2008Q4

REPORT INFORMATION
  Report Type: 
  Country: None (occurrence: None)
  Receive Date: 20081022
  Receipt Date: 20081021
  Transmission Date: 20090506
  Serious: Yes (Other)
  Sender: FDA-Public Use
  Company Number: D0058756A

PATIENT
  Age: 78 Year
  Sex: Male
  Weight: 82 kg

DRUGS (3)
  1. AVANDAMET [Suspect]
     Indication: DIABETES MELLITUS
     Route: 048
     Dates: start: 20060101
  2. BISOPROLOL FUMARATE [Concomitant]
     Route: 065
  3. CO APROVEL [Concomitant]
     Route: 065

REACTIONS (3)
  - HYPERGAMMAGLOBULINAEMIA [None]
  - IMMUNOGLOBULINS INCREASED [None]
  - MUSCULOSKELETAL PAIN [None]
